FAERS Safety Report 23983122 (Version 1)
Quarter: 2024Q2

REPORT INFORMATION
  Report Type: Spontaneous
  Country: CN (occurrence: CN)
  Receive Date: 20240617
  Receipt Date: 20240617
  Transmission Date: 20240716
  Serious: Yes (Other)
  Sender: FDA-Public Use
  Company Number: None

PATIENT
  Age: 15 Year
  Sex: Male
  Weight: 48 kg

DRUGS (3)
  1. OLANZAPINE [Suspect]
     Active Substance: OLANZAPINE
     Indication: Psychotic symptom
     Dosage: 3.75MG,QD
     Route: 048
     Dates: start: 20240530, end: 20240607
  2. OLANZAPINE [Suspect]
     Active Substance: OLANZAPINE
     Dosage: 5MG,QD
     Route: 048
     Dates: start: 20240530, end: 20240607
  3. RISPERIDONE [Suspect]
     Active Substance: RISPERIDONE
     Indication: Psychotic symptom
     Dosage: 1MG,BID
     Route: 048
     Dates: start: 20240530, end: 20240607

REACTIONS (1)
  - Gaze palsy [Recovering/Resolving]

NARRATIVE: CASE EVENT DATE: 20240530
